FAERS Safety Report 9198517 (Version 1)
Quarter: 2013Q1

REPORT INFORMATION
  Report Type: Spontaneous
  Country: US (occurrence: US)
  Receive Date: 20130329
  Receipt Date: 20130329
  Transmission Date: 20140127
  Serious: Yes (Other)
  Sender: FDA-Public Use
  Company Number: PHEH2013US006878

PATIENT
  Sex: Female

DRUGS (3)
  1. DIOVAN HCT [Suspect]
     Dosage: UNK UKN, UNK
  2. MULTIVITAMINS [Concomitant]
  3. VALSARTAN + HIDROCLOROTIAZIDE [Suspect]

REACTIONS (3)
  - Deafness [Unknown]
  - Fall [Unknown]
  - Posture abnormal [Unknown]
